FAERS Safety Report 17690090 (Version 2)
Quarter: 2020Q2

REPORT INFORMATION
  Report Type: Spontaneous
  Country: FR (occurrence: FR)
  Receive Date: 20200421
  Receipt Date: 20200428
  Transmission Date: 20200714
  Serious: Yes (Other)
  Sender: FDA-Public Use
  Company Number: FR-JNJFOC-20200417330

PATIENT
  Sex: Female
  Weight: 92 kg

DRUGS (3)
  1. HUMIRA [Suspect]
     Active Substance: ADALIMUMAB
     Indication: CROHN^S DISEASE
     Dosage: 40 MG
     Route: 058
     Dates: start: 20151006
  2. HUMIRA [Suspect]
     Active Substance: ADALIMUMAB
     Dosage: FOR 15 DAYS OR 40 MG A WEEK
     Route: 058
     Dates: start: 201607, end: 201906
  3. STELARA [Suspect]
     Active Substance: USTEKINUMAB
     Indication: PRODUCT USED FOR UNKNOWN INDICATION
     Route: 058
     Dates: start: 201906

REACTIONS (7)
  - Staphylococcal infection [Unknown]
  - Hidradenitis [Recovering/Resolving]
  - Angular cheilitis [Recovered/Resolved]
  - Erythema [Not Recovered/Not Resolved]
  - Rhinalgia [Recovered/Resolved]
  - Folliculitis [Not Recovered/Not Resolved]
  - Ear injury [Recovering/Resolving]

NARRATIVE: CASE EVENT DATE: 201511
